FAERS Safety Report 9298954 (Version 1)
Quarter: 2013Q2

REPORT INFORMATION
  Report Type: Spontaneous
  Country: GB (occurrence: None)
  Receive Date: 20130515
  Receipt Date: 20130515
  Transmission Date: 20140414
  Serious: Yes (Hospitalization, Other)
  Sender: FDA-Public Use
  Company Number: FK201301489

PATIENT
  Age: 17 Year
  Sex: Male

DRUGS (9)
  1. PIPERACILLIN/TAZOBACTAM [Suspect]
     Indication: PRODUCT USED FOR UNKNOWN INDICATION
     Route: 042
     Dates: start: 20130405, end: 20130409
  2. MOVICOL [Concomitant]
  3. OMEPRAZOLE (OMEPRAZOLE)(OMEPRAZOLE) [Concomitant]
  4. URSODEOXYCHOLIC ACID (URSODEOXYCHOLIC ACID)(URSODEOXYCHOLIC ACID) [Concomitant]
  5. VENTOLIN (SALBUTAMOL)(SALBUTAMOL) [Concomitant]
  6. VITAMINE A (RETINOL)(RETINOL) [Concomitant]
  7. VITAMINE D (ERGOCALCIFEROL)(ERGOCALCIFEROL) [Concomitant]
  8. VITAMINE E (TOCOPHERYL ACETATE)(TOCOPHERYL ACETATE) [Concomitant]
  9. VITAMINE K (MENADIONE)(MENADIONE) [Concomitant]

REACTIONS (8)
  - Nausea [None]
  - Vomiting [None]
  - Headache [None]
  - Hypoaesthesia oral [None]
  - Hypoaesthesia [None]
  - Rash [None]
  - Malaise [None]
  - Body temperature increased [None]
